FAERS Safety Report 18881777 (Version 58)
Quarter: 2022Q2

REPORT INFORMATION
  Report Type: Report from Study
  Country: MX (occurrence: MX)
  Receive Date: 20210211
  Receipt Date: 20220408
  Transmission Date: 20220721
  Serious: Yes (Hospitalization, Other)
  Sender: FDA-Public Use
  Company Number: MX-TAKEDA-MX202026074

PATIENT
  Age: 16 Year
  Sex: Male
  Weight: 35 kg

DRUGS (8)
  1. IDURSULFASE [Suspect]
     Active Substance: IDURSULFASE
     Indication: Mucopolysaccharidosis II
     Dosage: 2 DOSAGE FORM, 1/WEEK
     Route: 042
     Dates: start: 20140723
  2. IDURSULFASE [Suspect]
     Active Substance: IDURSULFASE
     Dosage: 12 MILLIGRAM, 1/WEEK
     Route: 042
     Dates: start: 20140627
  3. LEVETIRACETAM [Concomitant]
     Active Substance: LEVETIRACETAM
     Indication: Seizure
     Dosage: 1500 MILLIGRAM, BID
     Route: 048
  4. TOPIRAMATE [Concomitant]
     Active Substance: TOPIRAMATE
     Indication: Seizure
     Dosage: 200 MILLIGRAM, BID
     Route: 048
  5. CLOBAZAM [Concomitant]
     Active Substance: CLOBAZAM
     Indication: Seizure
     Dosage: 7.5 MILLIGRAM, BID
     Route: 048
  6. Epigran [Concomitant]
     Dosage: 200 MILLIGRAM, BID
     Route: 048
  7. CLOBAZAM [Concomitant]
     Active Substance: CLOBAZAM
     Indication: Seizure
     Dosage: 7.5 MILLIGRAM, BID
     Route: 048
  8. ANEPIGRAN [Concomitant]
     Indication: Epilepsy
     Dosage: 200 MILLIGRAM, BID
     Route: 048

REACTIONS (18)
  - Seizure [Not Recovered/Not Resolved]
  - Pyrexia [Recovered/Resolved]
  - Bacterial infection [Recovered/Resolved]
  - Pharyngitis [Unknown]
  - Lung disorder [Unknown]
  - Nail discolouration [Recovered/Resolved]
  - Lip discolouration [Recovered/Resolved]
  - Tongue discolouration [Recovered/Resolved]
  - Dry throat [Not Recovered/Not Resolved]
  - Cognitive disorder [Unknown]
  - Condition aggravated [Not Recovered/Not Resolved]
  - Chills [Recovered/Resolved]
  - Nervous system disorder [Not Recovered/Not Resolved]
  - Infusion related reaction [Unknown]
  - Drug ineffective [Not Recovered/Not Resolved]
  - Therapy interrupted [Not Recovered/Not Resolved]
  - Inappropriate schedule of product administration [Unknown]
  - Product dose omission issue [Not Recovered/Not Resolved]

NARRATIVE: CASE EVENT DATE: 20200701
